FAERS Safety Report 16086716 (Version 2)
Quarter: 2019Q1

REPORT INFORMATION
  Report Type: Report from Study
  Country: EG (occurrence: EG)
  Receive Date: 20190318
  Receipt Date: 20190325
  Transmission Date: 20190418
  Serious: Yes (Death, Congenital Anomaly)
  Sender: FDA-Public Use
  Company Number: PHHY2019EG052935

PATIENT

DRUGS (1)
  1. TASIGNA [Suspect]
     Active Substance: NILOTINIB
     Indication: FOETAL EXPOSURE DURING PREGNANCY
     Dosage: 800 MG, QD
     Route: 064

REACTIONS (2)
  - Death [Fatal]
  - Heart disease congenital [Unknown]

NARRATIVE: CASE EVENT DATE: 2014
